FAERS Safety Report 23740665 (Version 2)
Quarter: 2024Q2

REPORT INFORMATION
  Report Type: Spontaneous
  Country: US (occurrence: US)
  Receive Date: 20240415
  Receipt Date: 20240423
  Transmission Date: 20240716
  Serious: Yes (Other)
  Sender: FDA-Public Use
  Company Number: US-SPECGX-T202400830

PATIENT
  Sex: Female

DRUGS (3)
  1. ACETAMINOPHEN\HYDROCODONE [Suspect]
     Active Substance: ACETAMINOPHEN\HYDROCODONE
     Indication: Pain
     Dosage: UNK
     Route: 065
     Dates: start: 2023
  2. ACETAMINOPHEN\HYDROCODONE [Suspect]
     Active Substance: ACETAMINOPHEN\HYDROCODONE
     Dosage: 10/300 MG (6 TIMES A DAY)
     Route: 065
  3. ACETAMINOPHEN\HYDROCODONE [Suspect]
     Active Substance: ACETAMINOPHEN\HYDROCODONE
     Dosage: 10/300 MG (3 TIMES A DAY)
     Route: 065

REACTIONS (5)
  - Ligament operation [Unknown]
  - Anaphylactic reaction [Unknown]
  - Disturbance in attention [Unknown]
  - Stress [Unknown]
  - Insomnia [Unknown]
